FAERS Safety Report 25935926 (Version 1)
Quarter: 2025Q4

REPORT INFORMATION
  Report Type: Spontaneous
  Country: US (occurrence: None)
  Receive Date: 20251017
  Receipt Date: 20251017
  Transmission Date: 20260118
  Serious: Yes (Hospitalization)
  Sender: FDA-CTU
  Company Number: None

PATIENT
  Sex: Female

DRUGS (10)
  1. TEZSPIRE [Suspect]
     Active Substance: TEZEPELUMAB-EKKO
     Indication: Asthma
     Dosage: OTHER QUANTITY : 1 PEN UNDER THE SKIN ;?FREQUENCY : MONTHLY;?
     Route: 058
     Dates: start: 20240828
  2. ALBUTEROL [Concomitant]
     Active Substance: ALBUTEROL
  3. ARMODAFINIL [Concomitant]
     Active Substance: ARMODAFINIL
  4. BUDES/FORMOT [Concomitant]
  5. DOXYCYCL [Concomitant]
  6. A-HYDROCORT [Concomitant]
     Active Substance: HYDROCORTISONE SODIUM SUCCINATE
  7. LO LOESTRIN FE [Concomitant]
     Active Substance: ETHINYL ESTRADIOL\NORETHINDRONE ACETATE
  8. MONTELUKAST [Concomitant]
     Active Substance: MONTELUKAST
  9. NORETH/ETHI N [Concomitant]
  10. NUCALA [Concomitant]
     Active Substance: MEPOLIZUMAB

REACTIONS (2)
  - Drug ineffective [None]
  - Suture insertion [None]
